FAERS Safety Report 12585357 (Version 2)
Quarter: 2016Q3

REPORT INFORMATION
  Report Type: Report from Study
  Country: PL (occurrence: PL)
  Receive Date: 20160724
  Receipt Date: 20160822
  Transmission Date: 20161109
  Serious: Yes (Hospitalization)
  Sender: FDA-Public Use
  Company Number: PHHY2016PL096812

PATIENT
  Age: 4 Year
  Sex: Female

DRUGS (1)
  1. EXJADE [Suspect]
     Active Substance: DEFERASIROX
     Indication: PRODUCT USED FOR UNKNOWN INDICATION
     Dosage: 250 MG, QD
     Route: 065
     Dates: start: 20160614

REACTIONS (4)
  - Diarrhoea [Unknown]
  - Pyrexia [Unknown]
  - Blood creatinine increased [Unknown]
  - Salmonella test positive [Unknown]
